FAERS Safety Report 8953259 (Version 1)
Quarter: 2012Q4

REPORT INFORMATION
  Report Type: 
  Country: US (occurrence: US)
  Receive Date: 20121206
  Receipt Date: 20121206
  Transmission Date: 20130627
  Serious: Yes (Hospitalization)
  Sender: FDA-Public Use
  Company Number: US-SANOFI-AVENTIS-2012SA088696

PATIENT
  Age: 68 Year
  Sex: Female

DRUGS (1)
  1. APIDRA [Suspect]
     Indication: DIABETES
     Route: 058
     Dates: start: 2010

REACTIONS (4)
  - Femur fracture [Unknown]
  - Fall [Recovered/Resolved]
  - Infection [Unknown]
  - Blood glucose increased [Unknown]
